FAERS Safety Report 9818997 (Version 1)
Quarter: 2014Q1

REPORT INFORMATION
  Report Type: Spontaneous
  Country: GB (occurrence: None)
  Receive Date: 20140113
  Receipt Date: 20140113
  Transmission Date: 20141002
  Serious: Yes (Other)
  Sender: FDA-Public Use
  Company Number: AUR-APL-2014-00148

PATIENT
  Age: 50 Year
  Sex: Female

DRUGS (1)
  1. IRBESARTAN (IRBESARTAN) [Suspect]
     Indication: HYPERTENSION
     Route: 048

REACTIONS (3)
  - Blood pressure increased [None]
  - Drug ineffective [None]
  - Product substitution issue [None]
